FAERS Safety Report 5001841-2 (Version None)
Quarter: 2006Q2

REPORT INFORMATION
  Report Type: 
  Country: None (occurrence: None)
  Receive Date: 20060515
  Receipt Date: 20060322
  Transmission Date: 20061013
  Serious: Yes (Death, Hospitalization, Other)
  Sender: FDA-Public Use
  Company Number: NL-GLAXOSMITHKLINE-B0417569A

PATIENT
  Age: 54 Year
  Sex: Female

DRUGS (15)
  1. SERETIDE [Suspect]
     Indication: CHRONIC OBSTRUCTIVE PULMONARY DISEASE
     Dosage: 550MCG UNKNOWN
     Route: 055
  2. ITRACONAZOLE [Suspect]
     Indication: DRUG USE FOR UNKNOWN INDICATION
     Dosage: 200MG TWICE PER DAY
     Route: 048
     Dates: start: 20050906, end: 20060203
  3. DOXYCYCLINE [Concomitant]
     Indication: ECZEMA
     Route: 065
  4. PARACETAMOL [Concomitant]
     Dosage: 500MG AS REQUIRED
     Route: 065
  5. CODEINE [Concomitant]
     Dosage: 20MG PER DAY
     Route: 048
     Dates: start: 20060109
  6. CETOMACROGOL [Concomitant]
     Route: 061
     Dates: start: 20051101, end: 20060116
  7. VENTOLIN [Concomitant]
     Dosage: 400MCG PER DAY
     Route: 055
  8. SPIRIVA [Concomitant]
     Dosage: 18MCG PER DAY
     Route: 055
  9. HYDROCORTISONE [Concomitant]
     Dosage: 30MG PER DAY
     Route: 048
     Dates: start: 20051130, end: 20051220
  10. CITALOPRAM HYDROBROMIDE [Concomitant]
     Dosage: 20MG PER DAY
     Route: 048
  11. OXAZEPAM [Concomitant]
     Route: 048
     Dates: start: 20050812, end: 20050820
  12. CETIRIZINE HCL [Concomitant]
     Dosage: 5MG PER DAY
     Route: 048
  13. FOLIC ACID [Concomitant]
     Dosage: 5MG THREE TIMES PER WEEK
     Route: 048
     Dates: start: 20051026
  14. PREDNISOLONE [Concomitant]
     Dosage: 5MG PER DAY
     Route: 048
     Dates: start: 20050413, end: 20050919
  15. CLONIDINE [Concomitant]
     Route: 065

REACTIONS (12)
  - ABDOMINAL DISTENSION [None]
  - COUGH [None]
  - CUSHING'S SYNDROME [None]
  - DRUG INTERACTION [None]
  - DYSPNOEA [None]
  - FATIGUE [None]
  - HAEMOPTYSIS [None]
  - HAIR GROWTH ABNORMAL [None]
  - OEDEMA PERIPHERAL [None]
  - RESPIRATORY FAILURE [None]
  - SWELLING FACE [None]
  - WEIGHT INCREASED [None]
